FAERS Safety Report 23091751 (Version 1)
Quarter: 2023Q4

REPORT INFORMATION
  Report Type: Spontaneous
  Country: US (occurrence: US)
  Receive Date: 20231020
  Receipt Date: 20231020
  Transmission Date: 20240110
  Serious: No
  Sender: FDA-Public Use
  Company Number: US-SA-SAC20231017000100

PATIENT
  Age: 48 Year
  Sex: Female

DRUGS (1)
  1. DUPIXENT [Suspect]
     Active Substance: DUPILUMAB
     Indication: Eczema
     Dosage: 300 MG/2 ML, 1 PEN EVERY 14 DAYS
     Route: 058
     Dates: start: 202308

REACTIONS (2)
  - Oropharyngeal pain [Unknown]
  - Fatigue [Unknown]
